FAERS Safety Report 7484157-4 (Version None)
Quarter: 2011Q2

REPORT INFORMATION
  Report Type: 
  Country: None (occurrence: None)
  Receive Date: 20110517
  Receipt Date: 20110504
  Transmission Date: 20111010
  Serious: Yes (Other)
  Sender: FDA-Public Use
  Company Number: US-ELI_LILLY_AND_COMPANY-US201105002109

PATIENT
  Sex: Female

DRUGS (2)
  1. CYMBALTA [Suspect]
     Indication: PAIN IN EXTREMITY
     Dosage: 30 MG, EACH EVENING
     Dates: start: 20110503, end: 20110506
  2. FENTANYL [Concomitant]
     Dosage: UNK

REACTIONS (21)
  - HEADACHE [None]
  - DYSPNOEA [None]
  - ABDOMINAL PAIN UPPER [None]
  - INFLUENZA LIKE ILLNESS [None]
  - ABDOMINAL DISCOMFORT [None]
  - VIBRATORY SENSE INCREASED [None]
  - DEPRESSION [None]
  - SENSATION OF PRESSURE [None]
  - ASTHENIA [None]
  - THINKING ABNORMAL [None]
  - CONFUSIONAL STATE [None]
  - DIARRHOEA [None]
  - FATIGUE [None]
  - HYPOAESTHESIA [None]
  - DRUG WITHDRAWAL HEADACHE [None]
  - WITHDRAWAL SYNDROME [None]
  - SUICIDAL IDEATION [None]
  - NEURALGIA [None]
  - NAUSEA [None]
  - MUSCLE SPASMS [None]
  - CRYING [None]
